FAERS Safety Report 7039032-6 (Version None)
Quarter: 2010Q4

REPORT INFORMATION
  Report Type: 
  Country: None (occurrence: None)
  Receive Date: 20101012
  Receipt Date: 20100930
  Transmission Date: 20110411
  Serious: Yes (Hospitalization)
  Sender: FDA-Public Use
  Company Number: US-ELI_LILLY_AND_COMPANY-US201010000130

PATIENT
  Sex: Female

DRUGS (4)
  1. FORTEO [Suspect]
     Indication: OSTEOPOROSIS
     Dosage: 20 UG, DAILY (1/D)
  2. OMEPRAZOLE [Concomitant]
     Indication: GASTROOESOPHAGEAL REFLUX DISEASE
  3. METOPROLOL [Concomitant]
     Indication: BLOOD PRESSURE
  4. SIMVASTATIN [Concomitant]

REACTIONS (4)
  - HEART RATE INCREASED [None]
  - HYPERTENSION [None]
  - PNEUMONIA [None]
  - PYREXIA [None]
